FAERS Safety Report 4982706-9 (Version None)
Quarter: 2006Q2

REPORT INFORMATION
  Report Type: 
  Country: None (occurrence: None)
  Receive Date: 20060425
  Receipt Date: 20060301
  Transmission Date: 20061013
  Serious: Yes (Hospitalization)
  Sender: FDA-Public Use
  Company Number: US-MERCK-0603USA00448

PATIENT
  Age: 55 Year
  Sex: Female
  Weight: 103 kg

DRUGS (2)
  1. VIOXX [Suspect]
     Indication: BACK PAIN
     Route: 065
     Dates: start: 20011102, end: 20040101
  2. VIOXX [Suspect]
     Route: 065
     Dates: start: 20011102, end: 20040101

REACTIONS (8)
  - CEREBRAL DISORDER [None]
  - HYSTERECTOMY [None]
  - RADICULOPATHY [None]
  - RENAL DISORDER [None]
  - RENAL FAILURE [None]
  - RENAL INJURY [None]
  - TREATMENT NONCOMPLIANCE [None]
  - UTERINE DISORDER [None]
